FAERS Safety Report 5937854-3 (Version None)
Quarter: 2008Q4

REPORT INFORMATION
  Report Type: 
  Country: None (occurrence: None)
  Receive Date: 20081031
  Receipt Date: 20081028
  Transmission Date: 20090506
  Serious: Yes (Other)
  Sender: FDA-Public Use
  Company Number: GB-ASTRAZENECA-2008GB01943

PATIENT
  Age: 62 Year
  Sex: Female

DRUGS (2)
  1. LIDOCAINE [Suspect]
     Dosage: 2 DOSAGES
     Route: 061
     Dates: start: 20080919, end: 20080920
  2. CETYLPYRIDINIUM CHLORIDE [Suspect]
     Dosage: 2 DOSAGES
     Route: 061
     Dates: start: 20080919, end: 20080920

REACTIONS (5)
  - ERYTHEMA [None]
  - EYE SWELLING [None]
  - OCULAR HYPERAEMIA [None]
  - PAIN [None]
  - SWELLING FACE [None]
